FAERS Safety Report 8145145-8 (Version None)
Quarter: 2012Q1

REPORT INFORMATION
  Report Type: 
  Country: None (occurrence: None)
  Receive Date: 20120217
  Receipt Date: 20120213
  Transmission Date: 20120608
  Serious: Yes (Hospitalization, Other)
  Sender: FDA-Public Use
  Company Number: PHHY2012BR004974

PATIENT
  Sex: Female

DRUGS (5)
  1. RANITIDINE HCL [Concomitant]
     Indication: GASTRITIS
     Dosage: 2 TABLETS(150 MG) A DAY
     Dates: start: 19950101
  2. LEXOTAN [Concomitant]
     Indication: SLEEP DISORDER
     Dosage: 1 TABLET AT NIGHT
  3. AMITRIPTYLINE HCL [Concomitant]
     Indication: SLEEP DISORDER
     Dosage: 3 TABLETS(25 MG) DAILY
  4. DIOVAN HCT [Suspect]
     Indication: HYPERTENSION
     Dosage: 1 DF (160/12.5 MG), MORNING
  5. PHENOBARBITAL TAB [Concomitant]
     Indication: CONVULSION
     Dosage: 100 MG, PER DAY
     Dates: start: 19950101

REACTIONS (5)
  - SLEEP DISORDER [None]
  - LOWER LIMB FRACTURE [None]
  - FALL [None]
  - BALANCE DISORDER [None]
  - FEMUR FRACTURE [None]
